FAERS Safety Report 7732220-2 (Version None)
Quarter: 2011Q3

REPORT INFORMATION
  Report Type: 
  Country: None (occurrence: None)
  Receive Date: 20110906
  Receipt Date: 20110822
  Transmission Date: 20111222
  Serious: No
  Sender: FDA-Public Use
  Company Number: US-AMGEN-USASP2011042960

PATIENT
  Sex: Female

DRUGS (5)
  1. PROLIA [Suspect]
     Indication: OSTEOPOROSIS POSTMENOPAUSAL
     Dates: start: 20110614
  2. VITAMINS                           /90003601/ [Concomitant]
  3. SIMVASTATIN [Concomitant]
     Dosage: UNK
  4. FISH OIL [Concomitant]
  5. CITRACAL                           /00471001/ [Concomitant]

REACTIONS (1)
  - GINGIVAL RECESSION [None]
